FAERS Safety Report 18532445 (Version 3)
Quarter: 2021Q1

REPORT INFORMATION
  Report Type: Spontaneous
  Country: US (occurrence: US)
  Receive Date: 20201123
  Receipt Date: 20210223
  Transmission Date: 20210419
  Serious: Yes (Other)
  Sender: FDA-Public Use
  Company Number: US-CIPLA LTD.-2020US08785

PATIENT

DRUGS (2)
  1. ASMANEX HFA [Concomitant]
     Active Substance: MOMETASONE FUROATE
     Indication: ASTHMA
     Dosage: UNK, COUPLE OF YEARS AGO
  2. SALBUTAMOL [Suspect]
     Active Substance: ALBUTEROL
     Indication: ASTHMA
     Dosage: 2?4 PUFFS, A DAY, PRN (AS AND WHEN REQUIRED)
     Route: 065
     Dates: end: 20201111

REACTIONS (7)
  - Drug ineffective [Recovered/Resolved]
  - Vomiting [Recovered/Resolved]
  - Allergic reaction to excipient [Unknown]
  - Wheezing [Recovered/Resolved]
  - Illness [Recovered/Resolved]
  - Near death experience [Recovered/Resolved]
  - Product quality issue [Unknown]
